FAERS Safety Report 12360615 (Version 6)
Quarter: 2016Q3

REPORT INFORMATION
  Report Type: Spontaneous
  Country: JP (occurrence: JP)
  Receive Date: 20160512
  Receipt Date: 20160721
  Transmission Date: 20161109
  Serious: Yes (Hospitalization, Other)
  Sender: FDA-Public Use
  Company Number: JP-ABBVIE-16P-087-1626729-00

PATIENT
  Age: 56 Year
  Sex: Female
  Weight: 69 kg

DRUGS (21)
  1. ZOLPIDEM [Suspect]
     Active Substance: ZOLPIDEM\ZOLPIDEM TARTRATE
     Indication: GASTRITIS EROSIVE
     Route: 048
  2. MAGMITT [Suspect]
     Active Substance: MAGNESIUM OXIDE
     Indication: CONSTIPATION PROPHYLAXIS
     Route: 048
  3. LOXONIN [Suspect]
     Active Substance: LOXOPROFEN SODIUM
     Indication: RHEUMATOID ARTHRITIS
     Route: 062
  4. ETANERCEPT [Suspect]
     Active Substance: ETANERCEPT
     Dosage: 100 MG OR 150 MG
     Route: 048
     Dates: start: 20151211, end: 20160419
  5. PREDNISOLONE. [Suspect]
     Active Substance: PREDNISOLONE
     Indication: RHEUMATOID ARTHRITIS
     Route: 048
  6. MUCODYNE [Suspect]
     Active Substance: CARBOCYSTEINE
     Indication: SINUSITIS
     Route: 048
  7. LODOPIN [Suspect]
     Active Substance: ZOTEPINE
     Indication: GASTRITIS EROSIVE
     Route: 048
  8. ALLERMIST [Suspect]
     Active Substance: FLUTICASONE FUROATE
     Indication: SINUSITIS
     Route: 065
     Dates: start: 20160205
  9. ETANERCEPT [Suspect]
     Active Substance: ETANERCEPT
     Indication: RHEUMATOID ARTHRITIS
     Route: 048
     Dates: start: 20150917, end: 20151210
  10. LODOPIN [Suspect]
     Active Substance: ZOTEPINE
     Indication: PSYCHOTIC DISORDER
     Route: 048
  11. DIOVAN [Suspect]
     Active Substance: VALSARTAN
     Indication: HYPERTENSION
     Route: 048
  12. RISPERDAL [Suspect]
     Active Substance: RISPERIDONE
     Indication: PSYCHOTIC DISORDER
     Route: 048
  13. METHOTREXATE. [Suspect]
     Active Substance: METHOTREXATE
     Indication: RHEUMATOID ARTHRITIS
     Route: 048
     Dates: end: 20160529
  14. CELECOXIB. [Suspect]
     Active Substance: CELECOXIB
     Indication: RHEUMATOID ARTHRITIS
     Route: 048
     Dates: start: 20140206
  15. TRIPHEDINON [Suspect]
     Active Substance: TRIHEXYPHENIDYL HYDROCHLORIDE
     Indication: PSYCHOTIC DISORDER
     Route: 048
  16. KLARICID [Suspect]
     Active Substance: CLARITHROMYCIN
     Indication: SINUSITIS
     Route: 048
  17. LANSOPRAZOLE. [Suspect]
     Active Substance: LANSOPRAZOLE
     Indication: GASTRITIS EROSIVE
     Route: 048
  18. ISCOTIN [Suspect]
     Active Substance: ISONIAZID
     Indication: ANTIBIOTIC PROPHYLAXIS
     Route: 048
     Dates: start: 20150803
  19. FOLIAMIN [Suspect]
     Active Substance: FOLIC ACID
     Indication: PROPHYLAXIS
     Route: 048
  20. ONEALFA [Suspect]
     Active Substance: ALFACALCIDOL
     Indication: OSTEOPOROSIS
     Route: 048
  21. METHOTREXATE. [Suspect]
     Active Substance: METHOTREXATE
     Route: 048
     Dates: start: 20160601

REACTIONS (1)
  - Breast cancer [Recovering/Resolving]

NARRATIVE: CASE EVENT DATE: 20160419
